FAERS Safety Report 8781439 (Version 5)
Quarter: 2012Q4

REPORT INFORMATION
  Report Type: 
  Country: US (occurrence: US)
  Receive Date: 20120913
  Receipt Date: 20121207
  Transmission Date: 20130627
  Serious: Yes (Hospitalization, Other)
  Sender: FDA-Public Use
  Company Number: US-009507513-1201USA00403

PATIENT

DRUGS (9)
  1. FOSAMAX [Suspect]
     Indication: OSTEOPOROSIS
     Dosage: 10 mg, qd
     Route: 048
     Dates: start: 1995, end: 200110
  2. FOSAMAX [Suspect]
     Dosage: 70 mg, qw
     Route: 048
     Dates: start: 200111, end: 200802
  3. FOSAMAX [Suspect]
     Indication: OSTEOPOROSIS
     Dosage: 70 mg, qw
     Route: 048
     Dates: start: 200803, end: 200906
  4. CENTRUM SILVER [Concomitant]
     Dosage: UNK, qd
     Dates: start: 1980
  5. CALTRATE WITH VITAMIN D [Concomitant]
     Dosage: UNK, qd
     Dates: start: 1980
  6. CYANOCOBALAMIN [Concomitant]
     Indication: ENERGY INCREASED
     Dosage: UNK, qm
     Dates: start: 1980
  7. ALENDRONATE SODIUM [Suspect]
     Dosage: 70 mg, qw
     Route: 048
  8. EVISTA [Suspect]
     Indication: OSTEOPOROSIS
     Dosage: 60 mg, qd
     Route: 048
  9. VITAMIN D (UNSPECIFIED) [Concomitant]
     Dosage: 1600 IU, qd

REACTIONS (58)
  - Closed fracture manipulation [Unknown]
  - Femur fracture [Recovered/Resolved]
  - Femur fracture [Recovered/Resolved]
  - Pulmonary embolism [Unknown]
  - Infection [Unknown]
  - Skin cancer [Unknown]
  - Heart rate irregular [Unknown]
  - Fall [Unknown]
  - Blood cholesterol increased [Unknown]
  - Osteoarthritis [Unknown]
  - Impaired healing [Unknown]
  - Cardiac disorder [Unknown]
  - Fluid retention [Unknown]
  - Sleep disorder [Unknown]
  - Back pain [Unknown]
  - Cyst [Unknown]
  - Morton^s neuroma [Unknown]
  - Neurectomy [Unknown]
  - Rotator cuff syndrome [Unknown]
  - Rotator cuff repair [Unknown]
  - Rotator cuff syndrome [Unknown]
  - Arthropathy [Unknown]
  - Shoulder arthroplasty [Unknown]
  - Meniscus injury [Unknown]
  - Joint effusion [Unknown]
  - Exostosis [Unknown]
  - Cyst [Unknown]
  - Bursitis [Unknown]
  - Osteoarthritis [Unknown]
  - Meniscus operation [Unknown]
  - Meniscus injury [Unknown]
  - Arthroscopy [Unknown]
  - Rotator cuff repair [Unknown]
  - Rotator cuff syndrome [Unknown]
  - Osteoarthritis [Unknown]
  - Shoulder arthroplasty [Unknown]
  - Surgery [Unknown]
  - Pain in extremity [Unknown]
  - Intramedullary rod insertion [Unknown]
  - Deep vein thrombosis [Unknown]
  - Swelling [Not Recovered/Not Resolved]
  - Coronary artery disease [Unknown]
  - Nephrolithiasis [Unknown]
  - Drug hypersensitivity [Unknown]
  - Drug hypersensitivity [Unknown]
  - Night sweats [Unknown]
  - Drug hypersensitivity [Unknown]
  - Muscle strain [Unknown]
  - Intervertebral disc degeneration [Unknown]
  - Atrial fibrillation [Unknown]
  - Cardiac failure congestive [Unknown]
  - Bursitis [Unknown]
  - Adverse drug reaction [Unknown]
  - Asthenia [Unknown]
  - Urinary tract infection [Unknown]
  - Dehydration [Unknown]
  - Hysterectomy [Unknown]
  - Thyroidectomy [Unknown]
